FAERS Safety Report 5100215-3 (Version None)
Quarter: 2006Q3

REPORT INFORMATION
  Report Type: 
  Country: None (occurrence: None)
  Receive Date: 20060731
  Receipt Date: 20060514
  Transmission Date: 20061208
  Serious: No
  Sender: FDA-Public Use
  Company Number: 2006PV013820

PATIENT
  Age: 59 Year
  Sex: Female
  Weight: 142.4295 kg

DRUGS (3)
  1. BYETTA [Suspect]
     Indication: DIABETES MELLITUS NON-INSULIN-DEPENDENT
     Dosage: 10 MCG; BID; SC
     Route: 058
     Dates: start: 20060507, end: 20060514
  2. METFORMIN HCL [Concomitant]
  3. PAXIL [Concomitant]

REACTIONS (6)
  - ASTHENIA [None]
  - ENERGY INCREASED [None]
  - FATIGUE [None]
  - INFREQUENT BOWEL MOVEMENTS [None]
  - INJECTION SITE PAIN [None]
  - MUSCLE SPASMS [None]
